FAERS Safety Report 20170229 (Version 2)
Quarter: 2022Q1

REPORT INFORMATION
  Report Type: Report from Study
  Country: BR (occurrence: BR)
  Receive Date: 20211210
  Receipt Date: 20220114
  Transmission Date: 20220424
  Serious: Yes (Other)
  Sender: FDA-Public Use
  Company Number: BR-NOVARTISPH-NVSC2021BR277735

PATIENT
  Sex: Female

DRUGS (2)
  1. ADALIMUMAB [Suspect]
     Active Substance: ADALIMUMAB
     Indication: Product used for unknown indication
     Dosage: UNK (STOPPED AUG OR SEP 2021)
     Route: 065
     Dates: end: 2021
  2. ADALIMUMAB [Suspect]
     Active Substance: ADALIMUMAB
     Dosage: UNK
     Route: 065

REACTIONS (16)
  - Diabetes mellitus [Not Recovered/Not Resolved]
  - Spinal cord disorder [Unknown]
  - Platelet count decreased [Unknown]
  - Burning sensation [Unknown]
  - Gait inability [Unknown]
  - Psoriasis [Recovered/Resolved]
  - Musculoskeletal stiffness [Recovered/Resolved]
  - Sciatic nerve injury [Recovering/Resolving]
  - Liver disorder [Unknown]
  - Joint swelling [Unknown]
  - Finger deformity [Unknown]
  - Intervertebral disc protrusion [Not Recovered/Not Resolved]
  - Coccydynia [Recovering/Resolving]
  - Pain in extremity [Recovering/Resolving]
  - Arthralgia [Recovering/Resolving]
  - Paraesthesia [Unknown]
